FAERS Safety Report 10585970 (Version 5)
Quarter: 2015Q4

REPORT INFORMATION
  Report Type: Report from Study
  Country: US (occurrence: US)
  Receive Date: 20141114
  Receipt Date: 20151229
  Transmission Date: 20160304
  Serious: Yes (Hospitalization)
  Sender: FDA-Public Use
  Company Number: US-ACTELION-A-US2014-107854

PATIENT
  Age: 46 Year
  Sex: Female

DRUGS (10)
  1. ADCIRCA [Concomitant]
     Active Substance: TADALAFIL
     Dosage: 20 MG, 2 TABS DAILY
     Route: 065
  2. TORSEMIDE. [Concomitant]
     Active Substance: TORSEMIDE
     Dosage: 40 MG, UNK
  3. FUROSEMIDE. [Concomitant]
     Active Substance: FUROSEMIDE
  4. WARFARIN [Concomitant]
     Active Substance: WARFARIN
     Dosage: 5 MG, UNK
  5. SPIRONOLACTONE. [Concomitant]
     Active Substance: SPIRONOLACTONE
     Dosage: 50 MG, UNK
  6. ZAROXOLYN [Concomitant]
     Active Substance: METOLAZONE
     Dosage: 2.5 MG, UNK
  7. DIGOXIN. [Concomitant]
     Active Substance: DIGOXIN
     Dosage: 125 UNK, UNK
  8. MACITENTAN [Suspect]
     Active Substance: MACITENTAN
     Indication: PULMONARY HYPERTENSION
     Dosage: 10 MG, QD
     Route: 048
     Dates: start: 20140623
  9. TYVASO [Concomitant]
     Active Substance: TREPROSTINIL
     Indication: PRODUCT USED FOR UNKNOWN INDICATION
     Dosage: UNK
     Route: 065
     Dates: end: 201511
  10. REMODULIN [Suspect]
     Active Substance: TREPROSTINIL
     Indication: PULMONARY HYPERTENSION
     Dosage: 0.19 NG/KG, PER MIN
     Route: 065
     Dates: start: 20151113

REACTIONS (11)
  - Infusion site cellulitis [Recovering/Resolving]
  - Fluid overload [Not Recovered/Not Resolved]
  - Paracentesis [Not Recovered/Not Resolved]
  - Pulmonary oedema [Recovering/Resolving]
  - Dyspnoea [Not Recovered/Not Resolved]
  - Headache [Unknown]
  - Disease progression [Unknown]
  - Infusion site pain [Recovering/Resolving]
  - Right ventricular failure [Not Recovered/Not Resolved]
  - Infusion site erythema [Recovering/Resolving]
  - Ascites [Unknown]

NARRATIVE: CASE EVENT DATE: 20141027
